FAERS Safety Report 6570777-8 (Version None)
Quarter: 2010Q1

REPORT INFORMATION
  Report Type: 
  Country: None (occurrence: None)
  Receive Date: 20100204
  Receipt Date: 20100126
  Transmission Date: 20100710
  Serious: Yes (Hospitalization)
  Sender: FDA-Public Use
  Company Number: US-JNJFOC-20100110912

PATIENT
  Age: 10 Year
  Sex: Male
  Weight: 30.84 kg

DRUGS (5)
  1. RISPERDAL M TABS [Suspect]
     Indication: ABNORMAL BEHAVIOUR
     Route: 048
  2. RISPERDAL M TABS [Suspect]
     Route: 048
  3. FOCALIN [Concomitant]
     Indication: ATTENTION DEFICIT/HYPERACTIVITY DISORDER
     Route: 048
  4. DEPAKOTE [Concomitant]
     Indication: IMPULSIVE BEHAVIOUR
     Route: 048
  5. FOCALIN [Concomitant]
     Route: 048

REACTIONS (5)
  - ACCIDENTAL OVERDOSE [None]
  - ANGER [None]
  - ATTENTION DEFICIT/HYPERACTIVITY DISORDER [None]
  - DEPRESSED LEVEL OF CONSCIOUSNESS [None]
  - SOMNOLENCE [None]
